FAERS Safety Report 5391531-9 (Version None)
Quarter: 2007Q3

REPORT INFORMATION
  Report Type: 
  Country: None (occurrence: None)
  Receive Date: 20070719
  Receipt Date: 20070713
  Transmission Date: 20080115
  Serious: Yes (Death, Other)
  Sender: FDA-Public Use
  Company Number: ES-ELI_LILLY_AND_COMPANY-ES200707002309

PATIENT
  Age: 64 Year
  Sex: Male

DRUGS (2)
  1. PEMETREXED [Suspect]
     Indication: MESOTHELIOMA MALIGNANT
  2. CISPLATIN [Concomitant]
     Indication: MESOTHELIOMA MALIGNANT

REACTIONS (5)
  - DIARRHOEA [None]
  - DRUG TOXICITY [None]
  - NEUTROPENIA [None]
  - PNEUMONIA [None]
  - RENAL FAILURE [None]
